FAERS Safety Report 5378166-9 (Version None)
Quarter: 2007Q3

REPORT INFORMATION
  Report Type: 
  Country: None (occurrence: None)
  Receive Date: 20070705
  Receipt Date: 20070628
  Transmission Date: 20080115
  Serious: Yes (Hospitalization)
  Sender: FDA-Public Use
  Company Number: PHEH2007US09385

PATIENT
  Age: 88 Year
  Sex: Male

DRUGS (7)
  1. SYNTHROID [Concomitant]
  2. CELEXA [Concomitant]
  3. BENZTROPINE MESYLATE [Concomitant]
  4. CORDARONE [Concomitant]
  5. ABILIFY [Concomitant]
  6. PROTONIX [Concomitant]
  7. CLOZARIL [Suspect]

REACTIONS (1)
  - HIP FRACTURE [None]
